FAERS Safety Report 9676237 (Version 1)
Quarter: 2013Q4

REPORT INFORMATION
  Report Type: Spontaneous
  Country: US (occurrence: US)
  Receive Date: 20131107
  Receipt Date: 20131107
  Transmission Date: 20140711
  Serious: No
  Sender: FDA-Public Use
  Company Number: US-ENDO PHARMACEUTICALS INC.-METC20120006

PATIENT
  Age: 89 Year
  Sex: Female

DRUGS (1)
  1. METHOCARBAMOL TABLETS 750MG [Suspect]
     Indication: MYALGIA
     Route: 048
     Dates: start: 20120925

REACTIONS (1)
  - Polyuria [Not Recovered/Not Resolved]
